FAERS Safety Report 4489703-0 (Version None)
Quarter: 2004Q4

REPORT INFORMATION
  Report Type: 
  Country: None (occurrence: None)
  Receive Date: 20041027
  Receipt Date: 20040802
  Transmission Date: 20050328
  Serious: No
  Sender: FDA-Public Use
  Company Number: DL2004193

PATIENT
  Age: 23 Year
  Sex: Female

DRUGS (2)
  1. MIFEPRISTONE [Suspect]
     Indication: ABORTION INDUCED
     Dosage: 600 MG, ORAL
     Route: 048
     Dates: start: 20040609
  2. MISOPROSTOL [Suspect]
     Dosage: 400 MCG, ORAL
     Route: 048
     Dates: start: 20040611

REACTIONS (2)
  - ABORTION INCOMPLETE [None]
  - MENORRHAGIA [None]
